FAERS Safety Report 4711179-6 (Version None)
Quarter: 2005Q3

REPORT INFORMATION
  Report Type: 
  Country: None (occurrence: None)
  Receive Date: 20050708
  Receipt Date: 20050622
  Transmission Date: 20060218
  Serious: Yes (Other)
  Sender: FDA-Public Use
  Company Number: DSA_60499_2005

PATIENT
  Age: 16 Year
  Sex: Female

DRUGS (2)
  1. TONOPAN [Suspect]
     Indication: MIGRAINE
     Dosage: 1 TAB ONCE PO
     Route: 048
     Dates: start: 20050614, end: 20050614
  2. ACETAMINOPHEN [Concomitant]

REACTIONS (2)
  - ANGIONEUROTIC OEDEMA [None]
  - BRONCHOSPASM [None]
